FAERS Safety Report 8841665 (Version 1)
Quarter: 2012Q4

REPORT INFORMATION
  Report Type: 
  Country: DK (occurrence: DK)
  Receive Date: 20121015
  Receipt Date: 20121015
  Transmission Date: 20130627
  Serious: Yes (Life-Threatening)
  Sender: FDA-Public Use
  Company Number: DK-BAYER-2012-104589

PATIENT
  Age: 65 Year
  Sex: Male

DRUGS (7)
  1. NEXAVAR [Suspect]
     Indication: HEPATIC NEOPLASM MALIGNANT NON-RESECTABLE
     Dosage: 400 mg, BID
     Route: 048
     Dates: end: 20121002
  2. PANTOPRAZOLE [Concomitant]
     Route: 048
  3. FURIX [Concomitant]
     Route: 048
  4. SPIRIX [Concomitant]
     Route: 048
  5. METOPROLOL ^GEA^ [Concomitant]
     Route: 048
  6. CORODIL [Concomitant]
     Route: 048
  7. SIFROL [Concomitant]
     Route: 048

REACTIONS (1)
  - Myocardial ischaemia [Unknown]
